FAERS Safety Report 4479143-2 (Version None)
Quarter: 2004Q4

REPORT INFORMATION
  Report Type: 
  Country: None (occurrence: None)
  Receive Date: 20040923
  Receipt Date: 20040629
  Transmission Date: 20050328
  Serious: No
  Sender: FDA-Public Use
  Company Number: 207485

PATIENT

DRUGS (4)
  1. AVASTIN [Suspect]
     Indication: DRUG USE FOR UNKNOWN INDICATION
     Dosage: 5 MG/KG, Q2W, INTRAVENOUS
     Route: 042
     Dates: start: 20040401
  2. IRINOTECAN HCL [Concomitant]
  3. FLUOROURACIL [Concomitant]
  4. LEUCOVORIN (LEUCOVORIN CALCIUM) [Concomitant]

REACTIONS (1)
  - BLOOD CREATININE INCREASED [None]
